FAERS Safety Report 25171155 (Version 1)
Quarter: 2025Q2

REPORT INFORMATION
  Report Type: Report from Study
  Country: CA (occurrence: CA)
  Receive Date: 20250408
  Receipt Date: 20250408
  Transmission Date: 20250717
  Serious: Yes (Hospitalization)
  Sender: TOLMAR
  Company Number: TLM-2025-00098(0)

PATIENT
  Age: 77 Year
  Sex: Male

DRUGS (4)
  1. ELIGARD [Suspect]
     Active Substance: LEUPROLIDE ACETATE
     Indication: Prostate cancer
     Dosage: 45 MG, EVERY 6 MONTHS
     Route: 058
     Dates: start: 20221205
  2. ELIGARD [Suspect]
     Active Substance: LEUPROLIDE ACETATE
     Dosage: 45 MG, EVERY 6 MONTHS
     Route: 058
     Dates: start: 20241008
  3. ELIGARD [Suspect]
     Active Substance: LEUPROLIDE ACETATE
     Route: 058
     Dates: start: 20250327
  4. ELIGARD [Suspect]
     Active Substance: LEUPROLIDE ACETATE

REACTIONS (5)
  - Urinary tract disorder [Unknown]
  - Malaise [Unknown]
  - Weight decreased [Unknown]
  - Fat tissue decreased [Unknown]
  - Confusional state [Unknown]
